FAERS Safety Report 21560617 (Version 1)
Quarter: 2022Q4

REPORT INFORMATION
  Report Type: Spontaneous
  Country: FR (occurrence: FR)
  Receive Date: 20221107
  Receipt Date: 20221107
  Transmission Date: 20230113
  Serious: Yes (Hospitalization)
  Sender: FDA-Public Use
  Company Number: None

PATIENT
  Age: 44 Year
  Sex: Female

DRUGS (1)
  1. LANSOPRAZOLE [Suspect]
     Active Substance: LANSOPRAZOLE
     Indication: Oesophagitis
     Dosage: 30 MILLIGRAM, QD
     Route: 048
     Dates: start: 20220727, end: 20220808

REACTIONS (2)
  - Eosinophilic pneumonia [Recovered/Resolved]
  - Eosinophilia [Recovered/Resolved]

NARRATIVE: CASE EVENT DATE: 20220802
